FAERS Safety Report 10647735 (Version 1)
Quarter: 2014Q4

REPORT INFORMATION
  Report Type: Report from Study
  Country: US (occurrence: US)
  Receive Date: 20141212
  Receipt Date: 20141212
  Transmission Date: 20150529
  Serious: Yes (Disabling)
  Sender: FDA-Public Use
  Company Number: US-009507513-1412USA003275

PATIENT
  Sex: Male

DRUGS (5)
  1. DIDANOSINE. [Concomitant]
     Active Substance: DIDANOSINE
  2. ACYCLOVIR. [Concomitant]
     Active Substance: ACYCLOVIR
  3. ISENTRESS [Suspect]
     Active Substance: RALTEGRAVIR POTASSIUM
     Indication: HIV INFECTION
     Dosage: ^STANDARD ADULT DOSE^
     Route: 048
     Dates: start: 1985
  4. ATORVASTATIN [Concomitant]
     Active Substance: ATORVASTATIN
  5. INTELENCE [Concomitant]
     Active Substance: ETRAVIRINE

REACTIONS (2)
  - Neuropathy peripheral [Unknown]
  - Sense of oppression [Unknown]
